FAERS Safety Report 5298361-7 (Version None)
Quarter: 2007Q2

REPORT INFORMATION
  Report Type: 
  Country: None (occurrence: None)
  Receive Date: 20070416
  Receipt Date: 20070404
  Transmission Date: 20071010
  Serious: Yes (Other)
  Sender: FDA-Public Use
  Company Number: JP-PFIZER INC-2007023090

PATIENT
  Age: 80 Year
  Sex: Female

DRUGS (8)
  1. ZYVOX [Suspect]
     Indication: STAPHYLOCOCCAL INFECTION
     Dosage: DAILY DOSE:1200MG
     Route: 042
     Dates: start: 20070301, end: 20070314
  2. NOVOLIN 50/50 [Suspect]
     Dosage: TEXT:4 UNITS
     Route: 058
  3. INSULIN HUMAN [Suspect]
     Dosage: TEXT:12 UNITS
     Route: 058
  4. MICARDIS [Suspect]
     Indication: HYPERTENSION
     Dosage: DAILY DOSE:80MG
     Route: 048
  5. ALFACALCIDOL [Concomitant]
     Route: 048
  6. ALESION [Concomitant]
     Route: 048
  7. ADALAT [Concomitant]
     Route: 048
  8. UNIPHYL [Concomitant]
     Route: 048

REACTIONS (1)
  - HYPERGLYCAEMIA [None]
